FAERS Safety Report 8334537-X (Version None)
Quarter: 2012Q2

REPORT INFORMATION
  Report Type: 
  Country: None (occurrence: None)
  Receive Date: 20120503
  Receipt Date: 20120424
  Transmission Date: 20120825
  Serious: Yes (Hospitalization, Other)
  Sender: FDA-Public Use
  Company Number: US-BRISTOL-MYERS SQUIBB COMPANY-16511743

PATIENT
  Age: 70 Year
  Sex: Female
  Weight: 75 kg

DRUGS (5)
  1. SIMVASTATIN [Concomitant]
  2. CALCIUM [Concomitant]
  3. KEPPRA [Concomitant]
  4. VITAMIN TAB [Concomitant]
  5. AVAPRO [Suspect]

REACTIONS (6)
  - HAEMOPTYSIS [None]
  - PNEUMONIA ASPIRATION [None]
  - DRUG HYPERSENSITIVITY [None]
  - NON-ALCOHOLIC STEATOHEPATITIS [None]
  - HAEMANGIOMA OF LIVER [None]
  - WEIGHT DECREASED [None]
